FAERS Safety Report 23960884 (Version 1)
Quarter: 2024Q2

REPORT INFORMATION
  Report Type: Spontaneous
  Country: US (occurrence: None)
  Receive Date: 20240609
  Receipt Date: 20240609
  Transmission Date: 20240716
  Serious: Yes (Disabling, Other)
  Sender: FDA-Public Use
  Company Number: None

PATIENT
  Age: 44 Year
  Sex: Female
  Weight: 72.9 kg

DRUGS (1)
  1. VRAYLAR [Suspect]
     Active Substance: CARIPRAZINE
     Indication: Bipolar II disorder
     Dosage: OTHER QUANTITY : 1 CAPSULE(S);?FREQUENCY : AT BEDTIME;?
     Route: 048

REACTIONS (7)
  - Weight increased [None]
  - Type 2 diabetes mellitus [None]
  - Insulin resistance [None]
  - Inflammation [None]
  - Staphylococcal infection [None]
  - Furuncle [None]
  - Metabolic syndrome [None]

NARRATIVE: CASE EVENT DATE: 20200920
